FAERS Safety Report 7309834 (Version 2)
Quarter: 2014Q1

REPORT INFORMATION
  Report Type: Spontaneous
  Country: US (occurrence: None)
  Receive Date: 20100217
  Receipt Date: 20140122
  Transmission Date: 20141002
  Serious: Yes (Other)
  Sender: FDA-Public Use
  Company Number: 2009S1008894

PATIENT
  Age: 55 Year
  Sex: Female
  Weight: 97.98 kg

DRUGS (10)
  1. FLEET PHOSPHO-SODA ORAL SALINE LAXATIVE, GINGER-LEMON FLAVOR (ORAL SOLUTION) [Suspect]
     Indication: COLONOSCOPY
     Route: 048
     Dates: start: 20050517, end: 20050517
  2. ATIVAN (LORAZEPAM) - (0.5 MILLIGRAM) [Concomitant]
  3. AVAPRO (IRBESARTAN) (300 MILLIGRAM) [Concomitant]
  4. NORVASC (AMLODIPIN BESILATE) (10 MILLIGRAM) [Concomitant]
  5. HYDROCHLOROTHIAZIDE (HYDROCHLOROTHIAZIDE) (25 MILLIGRAM) [Concomitant]
  6. ATENOLOL (ATENOLOL) (25 MILLIGRAM) [Concomitant]
  7. NEXIUM (ESOMEPRAZOLE MAGNESIUM) (40 MILLIGRAM) [Concomitant]
  8. ZYRTEC (CETIRIZINE HYDROCHLORIDE) (10 MILLIGRAM) [Concomitant]
  9. DARVOCET (PARACETAMOL, DEXTROPROPOXYPHENE HYDROCHLORIDE) [Concomitant]
  10. ASPIRIN (ACETYLSALICYLIC ACID) [Concomitant]

REACTIONS (4)
  - Renal impairment [None]
  - Renal failure chronic [None]
  - Kidney small [None]
  - Glomerulonephritis [None]
